FAERS Safety Report 19813273 (Version 5)
Quarter: 2025Q3

REPORT INFORMATION
  Report Type: Spontaneous
  Country: US (occurrence: US)
  Receive Date: 20210909
  Receipt Date: 20250808
  Transmission Date: 20251021
  Serious: No
  Sender: PFIZER
  Company Number: US-PFIZER INC-2021299021

PATIENT
  Age: 7 Year
  Sex: Male

DRUGS (1)
  1. GENOTROPIN [Suspect]
     Active Substance: SOMATROPIN
     Indication: Short stature
     Dosage: 0.6 MG, DAILY
     Dates: start: 202103

REACTIONS (5)
  - Wrong technique in device usage process [Unknown]
  - Device use error [Unknown]
  - Drug dose omission by device [Unknown]
  - Device leakage [Unknown]
  - Device material issue [Unknown]

NARRATIVE: CASE EVENT DATE: 20210101
